FAERS Safety Report 19547498 (Version 1)
Quarter: 2021Q3

REPORT INFORMATION
  Report Type: Spontaneous
  Country: US (occurrence: US)
  Receive Date: 20210714
  Receipt Date: 20210714
  Transmission Date: 20211014
  Serious: No
  Sender: FDA-Public Use
  Company Number: None

PATIENT
  Age: 12 Year
  Sex: Male

DRUGS (1)
  1. NORDITROPIN [Suspect]
     Active Substance: SOMATROPIN
     Dosage: ?          OTHER DOSE:1 INJECTION ;OTHER FREQUENCY:N/A;?
     Route: 058
     Dates: start: 20210714

REACTIONS (1)
  - Product storage error [None]

NARRATIVE: CASE EVENT DATE: 20210714
